FAERS Safety Report 6503683-5 (Version None)
Quarter: 2009Q4

REPORT INFORMATION
  Report Type: 
  Country: None (occurrence: None)
  Receive Date: 20091216
  Receipt Date: 20091216
  Transmission Date: 20100525
  Serious: Yes (Hospitalization)
  Sender: FDA-Public Use
  Company Number: None

PATIENT
  Age: 46 Year
  Sex: Male
  Weight: 64.4 kg

DRUGS (5)
  1. SAHA (VORINOSTAT) 400MG D1-14 Q DAY [Suspect]
     Indication: LUNG NEOPLASM MALIGNANT
     Dates: start: 20091117
  2. BORTEZOMIB [Suspect]
     Indication: LUNG NEOPLASM MALIGNANT
     Dates: start: 20091117
  3. BORTEZOMIB [Suspect]
     Indication: LUNG NEOPLASM MALIGNANT
     Dates: start: 20091120
  4. BORTEZOMIB [Suspect]
     Indication: LUNG NEOPLASM MALIGNANT
     Dates: start: 20091124
  5. BORTEZOMIB [Suspect]
     Indication: LUNG NEOPLASM MALIGNANT
     Dates: start: 20091127

REACTIONS (2)
  - CHEST PAIN [None]
  - PLEURAL EFFUSION [None]
